FAERS Safety Report 20236621 (Version 1)
Quarter: 2021Q4

REPORT INFORMATION
  Report Type: Spontaneous
  Country: US (occurrence: None)
  Receive Date: 20211227
  Receipt Date: 20211227
  Transmission Date: 20220303
  Serious: No
  Sender: FDA-Public Use
  Company Number: None

PATIENT
  Age: 34 Year
  Sex: Female
  Weight: 51.75 kg

DRUGS (1)
  1. GLATIRAMER ACETATE [Suspect]
     Active Substance: GLATIRAMER ACETATE
     Indication: Multiple sclerosis
     Dosage: OTHER QUANTITY : 1 INJECTION(S);?OTHER FREQUENCY : 3 TIMES A WEEK;?
     Route: 058
     Dates: start: 20211213, end: 20211225

REACTIONS (7)
  - Injection site reaction [None]
  - Injection site erythema [None]
  - Injection site warmth [None]
  - Nausea [None]
  - Dizziness [None]
  - Syncope [None]
  - Fall [None]

NARRATIVE: CASE EVENT DATE: 20211225
